FAERS Safety Report 22070532 (Version 2)
Quarter: 2023Q1

REPORT INFORMATION
  Report Type: Spontaneous
  Country: None (occurrence: US)
  Receive Date: 20230307
  Receipt Date: 20230307
  Transmission Date: 20230418
  Serious: Yes (Life-Threatening)
  Sender: FDA-Public Use
  Company Number: US-Provepharm-2138790

PATIENT
  Age: 26 Year
  Sex: Male

DRUGS (1)
  1. PROVAYBLUE [Suspect]
     Active Substance: METHYLENE BLUE

REACTIONS (1)
  - Hypotension [Unknown]
